FAERS Safety Report 16765105 (Version 2)
Quarter: 2019Q3

REPORT INFORMATION
  Report Type: Spontaneous
  Country: US (occurrence: US)
  Receive Date: 20190903
  Receipt Date: 20190924
  Transmission Date: 20191005
  Serious: No
  Sender: FDA-Public Use
  Company Number: US-CELGENEUS-USA-20190808506

PATIENT
  Age: 27 Year
  Sex: Male

DRUGS (5)
  1. LIDEX [Concomitant]
     Active Substance: FLUOCINONIDE
     Indication: PSORIASIS
     Dosage: SMALL AMOUNT TO SCALP
     Route: 061
     Dates: start: 20190501
  2. OTEZLA [Suspect]
     Active Substance: APREMILAST
     Dosage: 60 MILLIGRAM
     Route: 048
     Dates: start: 20190731
  3. DOVONEX [Concomitant]
     Active Substance: CALCIPOTRIENE
     Indication: PSORIASIS
     Dosage: APPLY PSORIASIS IN GROIN AND BUTTOCKS
     Route: 061
     Dates: start: 20190501
  4. OTEZLA [Suspect]
     Active Substance: APREMILAST
     Indication: PSORIASIS
     Dosage: (10/20/30MG (28D))
     Route: 048
     Dates: start: 201905
  5. TEMOVATE [Concomitant]
     Active Substance: CLOBETASOL PROPIONATE
     Indication: PRODUCT USED FOR UNKNOWN INDICATION
     Dosage: APPLY ON THICK AREAS ON ELBOWS (MONDAY TO FRIDAY)
     Route: 061
     Dates: start: 20190501

REACTIONS (2)
  - Diarrhoea [Recovered/Resolved]
  - Product dose omission [Unknown]

NARRATIVE: CASE EVENT DATE: 2019
